FAERS Safety Report 6050585-7 (Version None)
Quarter: 2009Q1

REPORT INFORMATION
  Report Type: 
  Country: None (occurrence: None)
  Receive Date: 20090126
  Receipt Date: 20090114
  Transmission Date: 20090719
  Serious: Yes (Death, Hospitalization)
  Sender: FDA-Public Use
  Company Number: GB-PFIZER INC-2009157887

PATIENT

DRUGS (4)
  1. CLINDAMYCIN PHOSPHATE [Suspect]
     Indication: SKIN ULCER
  2. VILDAGLIPTIN [Suspect]
     Dosage: 50 MG, 2X/DAY
     Dates: start: 20081216
  3. GLICLAZIDE [Concomitant]
  4. METFORMIN HCL [Concomitant]

REACTIONS (5)
  - HYPERSENSITIVITY [None]
  - LIP SWELLING [None]
  - RENAL FAILURE [None]
  - SWELLING FACE [None]
  - SWOLLEN TONGUE [None]
